FAERS Safety Report 4921216-1 (Version None)
Quarter: 2006Q1

REPORT INFORMATION
  Report Type: 
  Country: None (occurrence: None)
  Receive Date: 20060224
  Receipt Date: 20051007
  Transmission Date: 20060701
  Serious: Yes (Hospitalization, Other)
  Sender: FDA-Public Use
  Company Number: US-SP-2005-02025

PATIENT
  Age: 20 Year
  Sex: Female
  Weight: 81 kg

DRUGS (1)
  1. TUBERSOL 5 TU [Suspect]
     Indication: TUBERCULIN TEST
     Route: 023
     Dates: start: 20051006

REACTIONS (17)
  - ASTHENIA [None]
  - BLOOD UREA DECREASED [None]
  - BLOOD UREA NITROGEN/CREATININE RATIO DECREASED [None]
  - BURNING SENSATION [None]
  - CHEST DISCOMFORT [None]
  - CONSCIOUSNESS FLUCTUATING [None]
  - DYSPNOEA [None]
  - FATIGUE [None]
  - HEART RATE INCREASED [None]
  - HYPERSENSITIVITY [None]
  - PAIN IN EXTREMITY [None]
  - PLATELET COUNT INCREASED [None]
  - RASH [None]
  - THROMBOCYTHAEMIA [None]
  - URTICARIA [None]
  - VOMITING [None]
  - WHEEZING [None]
